FAERS Safety Report 6073031-6 (Version None)
Quarter: 2009Q1

REPORT INFORMATION
  Report Type: 
  Country: None (occurrence: None)
  Receive Date: 20090209
  Receipt Date: 20090209
  Transmission Date: 20090719
  Serious: Yes (Other)
  Sender: FDA-Public Use
  Company Number: None

PATIENT
  Sex: Female
  Weight: 97.5234 kg

DRUGS (2)
  1. POLYETHYLENE GLYCOL 3350 AND ELECTOLYTES [Suspect]
     Indication: BOWEL PREPARATION
     Dosage: 2L RECONSTITUTED IN WATER PO
     Route: 048
     Dates: start: 20090203, end: 20090203
  2. POLYETHYLENE GLYCOL 3350 AND ELECTOLYTES [Suspect]
     Indication: COLONOSCOPY
     Dosage: 2L RECONSTITUTED IN WATER PO
     Route: 048
     Dates: start: 20090203, end: 20090203

REACTIONS (2)
  - ANGIOEDEMA [None]
  - URTICARIA [None]
